FAERS Safety Report 15945702 (Version 1)
Quarter: 2019Q1

REPORT INFORMATION
  Report Type: Spontaneous
  Country: US (occurrence: US)
  Receive Date: 20190110
  Receipt Date: 20190110
  Transmission Date: 20190417
  Serious: Yes (Life-Threatening)
  Sender: FDA-Public Use
  Company Number: None

PATIENT
  Age: 71 Year
  Sex: Male
  Weight: 99 kg

DRUGS (1)
  1. HEPARIN [Suspect]
     Active Substance: HEPARIN SODIUM
     Indication: STENT PATENCY MAINTENANCE
     Route: 042
     Dates: start: 20181218, end: 20181218

REACTIONS (5)
  - Cerebrovascular accident [None]
  - Cough [None]
  - Deep vein thrombosis [None]
  - Thrombocytopenia [None]
  - Wound dehiscence [None]

NARRATIVE: CASE EVENT DATE: 20181227
